FAERS Safety Report 22770373 (Version 2)
Quarter: 2024Q1

REPORT INFORMATION
  Report Type: Spontaneous
  Country: HU (occurrence: HU)
  Receive Date: 20230801
  Receipt Date: 20240328
  Transmission Date: 20240410
  Serious: Yes (Hospitalization)
  Sender: FDA-Public Use
  Company Number: HU-NOVOPROD-1096135

PATIENT
  Age: 69 Year
  Sex: Male
  Weight: 86 kg

DRUGS (9)
  1. RYBELSUS [Suspect]
     Active Substance: SEMAGLUTIDE
     Indication: Type 2 diabetes mellitus
     Dosage: UNK
     Dates: start: 20230630, end: 20230717
  2. CO VALSACOR [Concomitant]
     Indication: Product used for unknown indication
     Dosage: UNK (IN THE MORNING)
  3. VALSARTAN [Concomitant]
     Active Substance: VALSARTAN
     Indication: Product used for unknown indication
     Dosage: UNK (IN THE EVENING)
  4. NEBIVOLOL [Concomitant]
     Active Substance: NEBIVOLOL
     Indication: Product used for unknown indication
     Dosage: UNK(IN THE EVENING)
  5. AMLODIPINE BESYLATE [Concomitant]
     Active Substance: AMLODIPINE BESYLATE
     Indication: Product used for unknown indication
     Dosage: UNK(IN THE EVENING)
  6. DOXAZOSIN [Concomitant]
     Active Substance: DOXAZOSIN MESYLATE
     Indication: Product used for unknown indication
     Dosage: UNK(IN THE EVENING)
  7. ASPIRIN [Concomitant]
     Active Substance: ASPIRIN
     Indication: Product used for unknown indication
     Dosage: UNK(IN THE EVENING)
  8. ROSUVASTATIN [Concomitant]
     Active Substance: ROSUVASTATIN
     Indication: Product used for unknown indication
     Dosage: UNK(IN THE EVENING)
  9. MEFORAL [METFORMIN] [Concomitant]
     Indication: Type 2 diabetes mellitus
     Dosage: UNK(IN THE EVENING)

REACTIONS (2)
  - Acute kidney injury [Not Recovered/Not Resolved]
  - Anaemia [Unknown]

NARRATIVE: CASE EVENT DATE: 20230715
